FAERS Safety Report 4654635-1 (Version None)
Quarter: 2005Q2

REPORT INFORMATION
  Report Type: 
  Country: None (occurrence: None)
  Receive Date: 20050504
  Receipt Date: 20050504
  Transmission Date: 20051028
  Serious: No
  Sender: FDA-Public Use
  Company Number: None

PATIENT
  Age: 48 Year
  Sex: Female
  Weight: 48.5349 kg

DRUGS (2)
  1. ADVIL SINUS MEDICATION     STANDARD CAPSULE PACK [Suspect]
     Dosage: 1 ADVIL   2 DAYS  ORAL
     Route: 048
  2. IBUPROFEN     STANDARD DOSAGE TABLET [Suspect]
     Dosage: 1 IBUPROFE   1 IBUPROFEN  ORAL
     Route: 048

REACTIONS (15)
  - ABSCESS ORAL [None]
  - ARRHYTHMIA [None]
  - ASTHENIA [None]
  - DRUG TOXICITY [None]
  - DYSPNOEA [None]
  - HAEMORRHOIDS [None]
  - HEART RATE INCREASED [None]
  - LYMPHADENOPATHY [None]
  - MOUTH HAEMORRHAGE [None]
  - MUCOUS MEMBRANE DISORDER [None]
  - MUSCLE FATIGUE [None]
  - MUSCULOSKELETAL STIFFNESS [None]
  - OLIGOMENORRHOEA [None]
  - SWELLING FACE [None]
  - UTERINE HAEMORRHAGE [None]
